FAERS Safety Report 10674746 (Version 2)
Quarter: 2015Q1

REPORT INFORMATION
  Report Type: Report from Study
  Country: US (occurrence: US)
  Receive Date: 20141224
  Receipt Date: 20150113
  Transmission Date: 20150720
  Serious: Yes (Hospitalization)
  Sender: FDA-Public Use
  Company Number: PHEH2014US024869

PATIENT
  Age: 43 Year
  Sex: Female
  Weight: 47.98 kg

DRUGS (1)
  1. GILENYA [Suspect]
     Active Substance: FINGOLIMOD HYDROCHLORIDE
     Indication: MULTIPLE SCLEROSIS
     Dosage: 0.5 MG, QD
     Route: 048
     Dates: start: 20140916

REACTIONS (5)
  - Cough [Recovering/Resolving]
  - Vomiting [Recovering/Resolving]
  - Retching [Recovering/Resolving]
  - Exostosis [Recovering/Resolving]
  - Bronchitis [Recovering/Resolving]

NARRATIVE: CASE EVENT DATE: 20141121
